FAERS Safety Report 18093963 (Version 1)
Quarter: 2020Q3

REPORT INFORMATION
  Report Type: Spontaneous
  Country: GB (occurrence: GB)
  Receive Date: 20200730
  Receipt Date: 20200730
  Transmission Date: 20201103
  Serious: Yes (Life-Threatening)
  Sender: FDA-Public Use
  Company Number: GB-BAYER-2020-148838

PATIENT
  Age: 27 Year
  Sex: Male
  Weight: 70 kg

DRUGS (35)
  1. FERROUS SULFATE. [Concomitant]
     Active Substance: FERROUS SULFATE
     Dosage: 600 MG, QD
  2. MIRTAZAPINE. [Concomitant]
     Active Substance: MIRTAZAPINE
     Dosage: 30 MG, QD
  3. NOREPINEPHRINE. [Concomitant]
     Active Substance: NOREPINEPHRINE
     Dosage: UNK
  4. DEXMEDETOMIDINE. [Concomitant]
     Active Substance: DEXMEDETOMIDINE
     Dosage: UNK
  5. FUROSEMIDE. [Concomitant]
     Active Substance: FUROSEMIDE
     Dosage: UNK
  6. CREON [Concomitant]
     Active Substance: PANCRELIPASE AMYLASE\PANCRELIPASE LIPASE\PANCRELIPASE PROTEASE
     Dosage: 2 WITH MEALS AND 1 WITH SNACKS.
  7. MAGNESIUM SULFATE. [Concomitant]
     Active Substance: MAGNESIUM SULFATE
     Dosage: UNK
     Route: 042
  8. PHYTOMENADIONE [Concomitant]
     Active Substance: PHYTONADIONE
     Dosage: SEVERAL STAT DOSES
     Route: 042
  9. LORAZEPAM. [Concomitant]
     Active Substance: LORAZEPAM
     Dosage: 1?2MG
  10. RIFAXIMIN. [Concomitant]
     Active Substance: RIFAXIMIN
     Dosage: 1100 MG, QD
  11. ACETYLCYSTEINE. [Concomitant]
     Active Substance: ACETYLCYSTEINE
     Dosage: UNK
  12. HALOPERIDOL. [Suspect]
     Active Substance: HALOPERIDOL
     Indication: DELIRIUM
     Dosage: 2?4 HOURLY
     Route: 042
     Dates: start: 20200624
  13. METRONIDAZOLE. [Concomitant]
     Active Substance: METRONIDAZOLE
     Dosage: UNK
  14. LINEZOLID. [Concomitant]
     Active Substance: LINEZOLID
     Dosage: 1200 MG, QD
  15. OLANZAPINE. [Suspect]
     Active Substance: OLANZAPINE
     Indication: DELIRIUM
     Dosage: 10 MG, QD
     Route: 048
     Dates: start: 20200623
  16. PHOSPHATES [SODIUM PHOSPHATE] [Concomitant]
     Active Substance: SODIUM PHOSPHATE
     Dosage: UNK
  17. PANCREX [Concomitant]
     Dosage: UNK
  18. CEFTRIAXONE. [Concomitant]
     Active Substance: CEFTRIAXONE
     Dosage: 1 G, QD
  19. CIPROFLOXACIN. [Suspect]
     Active Substance: CIPROFLOXACIN
     Indication: ABDOMINAL SEPSIS
     Dosage: 800 MG, QD
     Route: 042
     Dates: start: 20200615, end: 20200624
  20. CASPOFUNGIN [Concomitant]
     Active Substance: CASPOFUNGIN
     Dosage: 35 MG, QD
  21. FLUCONAZOLE. [Concomitant]
     Active Substance: FLUCONAZOLE
     Dosage: 200 MG, QD
     Route: 042
  22. MAGNASPARTATE [Concomitant]
     Dosage: UNK
  23. MACROGOL [Concomitant]
     Active Substance: POLYETHYLENE GLYCOLS
     Dosage: UNK
  24. OMEPRAZOLE. [Concomitant]
     Active Substance: OMEPRAZOLE
     Dosage: 40 MG, QD
  25. FOLIC ACID. [Concomitant]
     Active Substance: FOLIC ACID
     Dosage: 5 MG, QD
  26. ALFENTANIL HYDROCHLORIDE. [Concomitant]
     Active Substance: ALFENTANIL HYDROCHLORIDE
     Dosage: UNK
  27. LACTULOSE. [Concomitant]
     Active Substance: LACTULOSE
     Dosage: UNK
  28. TINZAPARIN [Concomitant]
     Active Substance: TINZAPARIN
     Dosage: 3500 IU, QD
  29. MEROPENEM. [Concomitant]
     Active Substance: MEROPENEM
     Dosage: 2 G, QD
  30. PROPOFOL. [Concomitant]
     Active Substance: PROPOFOL
     Dosage: UNK
  31. TERLIPRESSIN [Concomitant]
     Active Substance: TERLIPRESSIN
     Dosage: UNK
  32. ASCORBIC ACID;NICOTINAMIDE;PYRIDOXINE;RIBOFLAVIN;THIAMINE [Concomitant]
     Dosage: UNK
  33. PARACETAMOL [Concomitant]
     Active Substance: ACETAMINOPHEN
     Dosage: UNK
  34. THIAMINE. [Concomitant]
     Active Substance: THIAMINE
     Dosage: 300 MG, QD
  35. PHENYTOIN. [Concomitant]
     Active Substance: PHENYTOIN
     Dosage: LOADING DOSE
     Dates: start: 20200622

REACTIONS (2)
  - Electrocardiogram QT prolonged [Recovering/Resolving]
  - Blood potassium decreased [Unknown]

NARRATIVE: CASE EVENT DATE: 20200624
